FAERS Safety Report 12395563 (Version 1)
Quarter: 2016Q2

REPORT INFORMATION
  Report Type: Spontaneous
  Country: US (occurrence: US)
  Receive Date: 20160523
  Receipt Date: 20160523
  Transmission Date: 20160815
  Serious: No
  Sender: FDA-Public Use
  Company Number: US-ENDO PHARMACEUTICALS INC.-2016-002843

PATIENT
  Age: 5 Year
  Sex: Female
  Weight: 41.2 kg

DRUGS (6)
  1. SUPPRELIN LA [Suspect]
     Active Substance: HISTRELIN ACETATE
     Route: 058
     Dates: start: 20140212, end: 201504
  2. SUPPRELIN LA [Suspect]
     Active Substance: HISTRELIN ACETATE
     Route: 058
     Dates: start: 20160407
  3. SUPPRELIN LA [Suspect]
     Active Substance: HISTRELIN ACETATE
     Indication: PRECOCIOUS PUBERTY
     Route: 058
     Dates: start: 201205, end: 20120727
  4. SUPPRELIN LA [Suspect]
     Active Substance: HISTRELIN ACETATE
     Route: 058
     Dates: start: 201212, end: 20140212
  5. SUPPRELIN LA [Suspect]
     Active Substance: HISTRELIN ACETATE
     Route: 058
     Dates: start: 20120727, end: 201208
  6. SUPPRELIN LA [Suspect]
     Active Substance: HISTRELIN ACETATE
     Route: 058
     Dates: start: 201504, end: 20160407

REACTIONS (4)
  - Implant site infection [Unknown]
  - Implant site erythema [Recovered/Resolved]
  - Implant site discharge [Recovered/Resolved]
  - Device expulsion [Recovered/Resolved]

NARRATIVE: CASE EVENT DATE: 201206
